FAERS Safety Report 24687333 (Version 1)
Quarter: 2024Q4

REPORT INFORMATION
  Report Type: Spontaneous
  Country: US (occurrence: None)
  Receive Date: 20241201
  Receipt Date: 20241201
  Transmission Date: 20250114
  Serious: Yes (Other)
  Sender: Public
  Company Number: None

PATIENT
  Age: 58 Year
  Sex: Male
  Weight: 112.05 kg

DRUGS (11)
  1. MONTELUKAST [Suspect]
     Active Substance: MONTELUKAST
     Indication: Rhinitis allergic
     Dosage: OTHER QUANTITY : 1 TABLET(S);?FREQUENCY : AT BEDTIME;?
     Route: 048
     Dates: start: 20240701, end: 20241120
  2. DEVICE [Concomitant]
     Active Substance: DEVICE
  3. LOSARTAN [Concomitant]
     Active Substance: LOSARTAN
  4. METOPROLOL TARTRATE [Concomitant]
     Active Substance: METOPROLOL TARTRATE
  5. OMEPRAZOLE [Concomitant]
     Active Substance: OMEPRAZOLE
  6. LEVOCETIRIZINE [Concomitant]
     Active Substance: LEVOCETIRIZINE
  7. VALACYCLOVIR [Concomitant]
     Active Substance: VALACYCLOVIR HYDROCHLORIDE
  8. TADALAFIL [Concomitant]
     Active Substance: TADALAFIL
  9. XHANCE [Suspect]
     Active Substance: FLUTICASONE PROPIONATE
  10. BUDESONIDE [Suspect]
     Active Substance: BUDESONIDE
  11. VITAMIN D [Suspect]
     Active Substance: VITAMIN D NOS

REACTIONS (2)
  - Abnormal dreams [None]
  - Nightmare [None]

NARRATIVE: CASE EVENT DATE: 20240701
